FAERS Safety Report 12578307 (Version 1)
Quarter: 2016Q3

REPORT INFORMATION
  Report Type: Spontaneous
  Country: US (occurrence: None)
  Receive Date: 20160720
  Receipt Date: 20160720
  Transmission Date: 20161109
  Serious: Yes (Disabling, Other)
  Sender: FDA-Public Use
  Company Number: None

PATIENT
  Age: 85 Year
  Sex: Female
  Weight: 58.97 kg

DRUGS (12)
  1. FISH OIL [Concomitant]
     Active Substance: FISH OIL
  2. POTASSIUM [Concomitant]
     Active Substance: POTASSIUM
  3. PROBIOTIC [Concomitant]
     Active Substance: PROBIOTICS NOS
  4. COQ10 [Concomitant]
     Active Substance: UBIDECARENONE
  5. MAGNESIUM [Concomitant]
     Active Substance: MAGNESIUM
  6. CIPRO [Suspect]
     Active Substance: CIPROFLOXACIN HYDROCHLORIDE
     Indication: CATARACT OPERATION
     Dosage: ? PILLS; EYE DROPS 3XDAY
     Dates: start: 20130713, end: 20130715
  7. GOLDEN RAISINS IN GIN [Concomitant]
  8. CURCUMIN [Concomitant]
     Active Substance: CURCUMIN
  9. B [Concomitant]
  10. LISINOPRIL. [Concomitant]
     Active Substance: LISINOPRIL
  11. C [Concomitant]
  12. CIPRO [Suspect]
     Active Substance: CIPROFLOXACIN HYDROCHLORIDE
     Indication: URINARY TRACT INFECTION
     Dosage: ? PILLS; EYE DROPS 3XDAY
     Dates: start: 20130713, end: 20130715

REACTIONS (4)
  - Photosensitivity reaction [None]
  - Headache [None]
  - Eye irritation [None]
  - Eyelid disorder [None]

NARRATIVE: CASE EVENT DATE: 20130718
